FAERS Safety Report 5447638-0 (Version None)
Quarter: 2007Q3

REPORT INFORMATION
  Report Type: 
  Country: None (occurrence: None)
  Receive Date: 20070906
  Receipt Date: 20070906
  Transmission Date: 20080115
  Serious: Yes (Hospitalization)
  Sender: FDA-Public Use
  Company Number: None

PATIENT
  Age: 20 Year
  Sex: Male
  Weight: 93.8946 kg

DRUGS (6)
  1. CISPLATIN [Suspect]
     Dosage: WEEKLY 30MG/M2 IV
     Route: 042
     Dates: start: 20070516, end: 20070828
  2. ERBITUX [Suspect]
     Dosage: WEEKLY 250MG/M2 IV
     Route: 042
     Dates: start: 20070516, end: 20070904
  3. RAD. THERAPY [Suspect]
     Dosage: DAILY
     Dates: end: 20070910
  4. DECADRON [Concomitant]
  5. CIPRO [Concomitant]
  6. AVELOX [Concomitant]

REACTIONS (1)
  - PYREXIA [None]
